FAERS Safety Report 23594630 (Version 1)
Quarter: 2024Q1

REPORT INFORMATION
  Report Type: Other
  Country: US (occurrence: None)
  Receive Date: 20240305
  Receipt Date: 20240305
  Transmission Date: 20240410
  Serious: No
  Sender: FDA-Public Use
  Company Number: US-ROCHE-3513814

PATIENT
  Age: 50 Year
  Sex: Female
  Weight: 62.198 kg

DRUGS (18)
  1. OCREVUS [Suspect]
     Active Substance: OCRELIZUMAB
     Indication: Relapsing multiple sclerosis
     Dosage: INFUSE 600MG INTRAVENOUSLY EVERY 6 MONTH
     Route: 042
  2. TIZANIDINE [Concomitant]
     Active Substance: TIZANIDINE
  3. SUMATRIPTAN [Concomitant]
     Active Substance: SUMATRIPTAN
  4. MECLIZINE [Concomitant]
     Active Substance: MECLIZINE HYDROCHLORIDE
  5. AZELASTINE [Concomitant]
     Active Substance: AZELASTINE\AZELASTINE HYDROCHLORIDE
  6. CINNAMON [Concomitant]
     Active Substance: CINNAMON
  7. PROAIR HFA [Concomitant]
     Active Substance: ALBUTEROL SULFATE
  8. CLARITIN [Concomitant]
     Active Substance: LORATADINE
  9. ALLEGRA [Concomitant]
     Active Substance: FEXOFENADINE HYDROCHLORIDE
  10. FISH OIL [Concomitant]
     Active Substance: FISH OIL
  11. FOLIC ACID [Concomitant]
     Active Substance: FOLIC ACID
  12. FLONASE [Concomitant]
     Active Substance: FLUTICASONE PROPIONATE
  13. LEVOTHYROXINE [Concomitant]
     Active Substance: LEVOTHYROXINE\LEVOTHYROXINE SODIUM
  14. SERTRALINE HYDROCHLORIDE [Concomitant]
     Active Substance: SERTRALINE HYDROCHLORIDE
  15. OXYBUTYNIN CHLORIDE [Concomitant]
     Active Substance: OXYBUTYNIN CHLORIDE
  16. CARBAMAZEPINE [Concomitant]
     Active Substance: CARBAMAZEPINE
  17. AMLODIPINE [Concomitant]
     Active Substance: AMLODIPINE BESYLATE
  18. HYDROXYCHLOROQUINE [Concomitant]
     Active Substance: HYDROXYCHLOROQUINE

REACTIONS (14)
  - Vertigo [Unknown]
  - Respiratory tract congestion [Unknown]
  - Respiratory tract infection [Unknown]
  - Monocyte count increased [Unknown]
  - Red cell distribution width decreased [Unknown]
  - Blood urea increased [Unknown]
  - CD4 lymphocytes increased [Unknown]
  - T-lymphocyte count increased [Unknown]
  - Blood immunoglobulin A decreased [Unknown]
  - Blood immunoglobulin M decreased [Unknown]
  - COVID-19 [Unknown]
  - Hypothyroidism [Unknown]
  - Blood creatinine increased [Unknown]
  - Albumin globulin ratio increased [Unknown]
